FAERS Safety Report 18681282 (Version 1)
Quarter: 2020Q4

REPORT INFORMATION
  Report Type: Other
  Country: TN (occurrence: TN)
  Receive Date: 20201230
  Receipt Date: 20201230
  Transmission Date: 20210114
  Serious: Yes (Hospitalization)
  Sender: FDA-Public Use
  Company Number: TN-ORCHID HEALTHCARE-2103632

PATIENT
  Age: 25 Year
  Sex: Female

DRUGS (1)
  1. TERBINAFINE HYDROCHLORIDE. [Suspect]
     Active Substance: TERBINAFINE HYDROCHLORIDE
     Indication: DERMATOPHYTOSIS
     Route: 048

REACTIONS (2)
  - Pityriasis rosea [Recovered/Resolved]
  - Pustular psoriasis [Recovered/Resolved]
